FAERS Safety Report 10016646 (Version 2)
Quarter: 2014Q1

REPORT INFORMATION
  Report Type: Report from Study
  Country: CA (occurrence: CA)
  Receive Date: 20140317
  Receipt Date: 20140317
  Transmission Date: 20141002
  Serious: Yes (Hospitalization, Other)
  Sender: FDA-Public Use
  Company Number: CA-ABBVIE-13P-028-1055256-00

PATIENT
  Sex: Female
  Weight: 39.04 kg

DRUGS (1)
  1. HUMIRA [Suspect]
     Indication: CROHN^S DISEASE
     Route: 058

REACTIONS (6)
  - Renal failure acute [Unknown]
  - Cardiac disorder [Not Recovered/Not Resolved]
  - Frequent bowel movements [Not Recovered/Not Resolved]
  - Local swelling [Unknown]
  - Cardiac failure [Unknown]
  - Weight decreased [Not Recovered/Not Resolved]
